FAERS Safety Report 5291796-8 (Version None)
Quarter: 2007Q2

REPORT INFORMATION
  Report Type: 
  Country: None (occurrence: None)
  Receive Date: 20070410
  Receipt Date: 20070330
  Transmission Date: 20071010
  Serious: Yes (Hospitalization, Other)
  Sender: FDA-Public Use
  Company Number: 2006UW23164

PATIENT
  Sex: Male
  Weight: 100.9 kg

DRUGS (4)
  1. SEROQUEL [Suspect]
     Indication: DEPRESSION
     Route: 048
     Dates: start: 20030610
  2. HALDOL [Concomitant]
  3. CYMBALTA [Concomitant]
  4. TRAZODONE HCL [Concomitant]
     Dates: start: 20060225

REACTIONS (6)
  - BLOOD CHOLESTEROL INCREASED [None]
  - COMA [None]
  - DIABETES MELLITUS [None]
  - DIABETIC COMA [None]
  - HYPERLIPIDAEMIA [None]
  - TARDIVE DYSKINESIA [None]
